FAERS Safety Report 7016473-4 (Version None)
Quarter: 2010Q3

REPORT INFORMATION
  Report Type: 
  Country: None (occurrence: None)
  Receive Date: 20100927
  Receipt Date: 20100922
  Transmission Date: 20110219
  Serious: Yes (Death, Hospitalization)
  Sender: FDA-Public Use
  Company Number: A0764353A

PATIENT
  Age: 65 Year
  Sex: Male
  Weight: 79.5 kg

DRUGS (16)
  1. AVANDIA [Suspect]
     Dosage: 8MG PER DAY
     Route: 048
     Dates: start: 20030101, end: 20070201
  2. METFORMIN [Concomitant]
  3. GLUCOTROL [Concomitant]
  4. LISINOPRIL [Concomitant]
  5. NIFEDIPINE [Concomitant]
  6. PROTONIX [Concomitant]
  7. ATENOLOL [Concomitant]
  8. LIPITOR [Concomitant]
  9. LIPITOR [Concomitant]
  10. PROTONIX [Concomitant]
  11. HYDROCHLOROTHIAZIDE [Concomitant]
  12. ENALAPRIL [Concomitant]
  13. ATENOLOL [Concomitant]
  14. GLUCOPHAGE [Concomitant]
  15. NIFEDIPINE [Concomitant]
  16. GLIPIZIDE [Concomitant]

REACTIONS (6)
  - CARDIAC ARREST [None]
  - CARDIAC FAILURE CONGESTIVE [None]
  - CEREBROVASCULAR ACCIDENT [None]
  - HEART INJURY [None]
  - MYOCARDIAL INFARCTION [None]
  - THROMBOSIS [None]
